FAERS Safety Report 4398907-7 (Version None)
Quarter: 2004Q2

REPORT INFORMATION
  Report Type: 
  Country: None (occurrence: None)
  Receive Date: 20040621
  Receipt Date: 20040213
  Transmission Date: 20050107
  Serious: Yes (Death)
  Sender: FDA-Public Use
  Company Number: USA-2003-0007011

PATIENT
  Age: 59 Year
  Sex: Male
  Weight: 78 kg

DRUGS (9)
  1. OXYCONTIN [Suspect]
  2. HYDROCODONE BITARTRATE [Suspect]
  3. DIPHENHYDRAMINE HCL [Suspect]
  4. SOMA [Suspect]
  5. MEPROBAMATE [Suspect]
  6. TEMAZEPAM [Suspect]
  7. NALBUPHINE HCL [Suspect]
  8. VALIUM [Suspect]
  9. CAFFEINE (CAFFEINE) [Suspect]

REACTIONS (1)
  - INTENTIONAL OVERDOSE [None]
